FAERS Safety Report 23060335 (Version 1)
Quarter: 2023Q4

REPORT INFORMATION
  Report Type: Spontaneous
  Country: US (occurrence: US)
  Receive Date: 20231012
  Receipt Date: 20231012
  Transmission Date: 20240109
  Serious: No
  Sender: FDA-Public Use
  Company Number: US-Sprout Pharmaceuticals, Inc.-2022SP000296

PATIENT
  Age: 64 Year
  Sex: Female
  Weight: 71.732 kg

DRUGS (2)
  1. ADDYI [Suspect]
     Active Substance: FLIBANSERIN
     Indication: Product used for unknown indication
     Route: 048
     Dates: start: 20220930, end: 20221007
  2. DILTIAZEM [Suspect]
     Active Substance: DILTIAZEM
     Indication: Product used for unknown indication
     Dates: start: 2021

REACTIONS (3)
  - Tremor [Unknown]
  - Contraindicated product prescribed [Unknown]
  - Somnolence [Unknown]

NARRATIVE: CASE EVENT DATE: 20220930
